FAERS Safety Report 15592378 (Version 2)
Quarter: 2018Q4

REPORT INFORMATION
  Report Type: Spontaneous
  Country: CH (occurrence: CH)
  Receive Date: 20181106
  Receipt Date: 20181113
  Transmission Date: 20190205
  Serious: Yes (Disabling, Other)
  Sender: FDA-Public Use
  Company Number: CH-GUERBET-CH-20180045

PATIENT
  Age: 41 Year
  Sex: Male
  Weight: 74 kg

DRUGS (1)
  1. DOTAREM [Suspect]
     Active Substance: GADOTERATE MEGLUMINE
     Indication: NUCLEAR MAGNETIC RESONANCE IMAGING
     Route: 042
     Dates: start: 20180723, end: 20180723

REACTIONS (21)
  - Ocular hyperaemia [Recovering/Resolving]
  - Amyotrophy [Recovering/Resolving]
  - Dry eye [Recovering/Resolving]
  - Joint stiffness [Recovering/Resolving]
  - Vision blurred [Recovering/Resolving]
  - Fatigue [Recovering/Resolving]
  - Muscle contractions involuntary [Recovering/Resolving]
  - Sleep disorder [Recovering/Resolving]
  - Allergy to arthropod sting [Recovering/Resolving]
  - Blood pressure fluctuation [Recovering/Resolving]
  - Urticaria [Recovering/Resolving]
  - Eye irritation [Recovering/Resolving]
  - Skin atrophy [Recovering/Resolving]
  - Product residue present [Recovering/Resolving]
  - Pruritus [Recovering/Resolving]
  - Chest pain [Recovering/Resolving]
  - Constipation [Recovering/Resolving]
  - Weight decreased [Recovering/Resolving]
  - Disturbance in attention [Recovering/Resolving]
  - Dysgeusia [Recovering/Resolving]
  - Hyperhidrosis [Recovering/Resolving]

NARRATIVE: CASE EVENT DATE: 2018
